FAERS Safety Report 8570816-9 (Version None)
Quarter: 2012Q3

REPORT INFORMATION
  Report Type: 
  Country: None (occurrence: None)
  Receive Date: 20120806
  Receipt Date: 20120726
  Transmission Date: 20120928
  Serious: Yes (Death, Hospitalization, Other)
  Sender: FDA-Public Use
  Company Number: US-MERCK-1207USA011518

PATIENT

DRUGS (8)
  1. VICTRELIS [Suspect]
     Route: 048
  2. PEGASYS [Suspect]
     Route: 058
  3. PRAVASTATIN SODIUM [Concomitant]
  4. SPIRONOLACTONE [Concomitant]
  5. SULFASALAZINE [Concomitant]
  6. ATENOLOL [Concomitant]
  7. REBETOL [Suspect]
     Dosage: DIVIDED DOSE
  8. FUROSEMIDE [Concomitant]
     Dosage: VARYING40-80 MG
     Route: 048

REACTIONS (4)
  - ASCITES [None]
  - HEPATIC CIRRHOSIS [None]
  - SPLENOMEGALY [None]
  - HAEMOLYTIC ANAEMIA [None]
